FAERS Safety Report 25840056 (Version 1)
Quarter: 2025Q3

REPORT INFORMATION
  Report Type: Spontaneous
  Country: CA (occurrence: CA)
  Receive Date: 20250924
  Receipt Date: 20250924
  Transmission Date: 20251021
  Serious: Yes (Other)
  Sender: ROCHE
  Company Number: CA-ROCHE-10000395155

PATIENT
  Age: 52 Year
  Sex: Male

DRUGS (23)
  1. TRASTUZUMAB [Suspect]
     Active Substance: TRASTUZUMAB
     Indication: Pancreatic carcinoma metastatic
     Route: 065
  2. CAPECITABINE [Suspect]
     Active Substance: CAPECITABINE
     Indication: Pancreatic carcinoma metastatic
     Route: 065
  3. PEMETREXED [Suspect]
     Active Substance: PEMETREXED
     Indication: Pancreatic carcinoma metastatic
     Route: 065
  4. OXALIPLATIN [Suspect]
     Active Substance: OXALIPLATIN
     Indication: Pancreatic carcinoma metastatic
     Route: 065
  5. LORBRENA [Suspect]
     Active Substance: LORLATINIB
     Indication: Pancreatic carcinoma metastatic
     Route: 065
  6. KEYTRUDA [Suspect]
     Active Substance: PEMBROLIZUMAB
     Indication: Pancreatic carcinoma metastatic
     Route: 065
  7. GEMCITABINE HYDROCHLORIDE [Suspect]
     Active Substance: GEMCITABINE HYDROCHLORIDE
     Indication: Pancreatic carcinoma metastatic
     Route: 065
  8. DOCETAXEL [Suspect]
     Active Substance: DOCETAXEL
     Indication: Product used for unknown indication
     Route: 065
  9. ALUNBRIG [Concomitant]
     Active Substance: BRIGATINIB
  10. AMILOMER [Concomitant]
     Active Substance: AMILOMER
  11. BEVACIZUMAB [Concomitant]
     Active Substance: BEVACIZUMAB
     Route: 042
  12. CISPLATIN [Concomitant]
     Active Substance: CISPLATIN
     Route: 042
  13. DEMCIZUMAB [Concomitant]
     Active Substance: DEMCIZUMAB
  14. ENTRECTINIB [Concomitant]
     Active Substance: ENTRECTINIB
  15. ETHIODIZED OIL [Concomitant]
     Active Substance: ETHIODIZED OIL
  16. FLUOROURACIL [Concomitant]
     Active Substance: FLUOROURACIL
  17. IRINOTECAN HYDROCHLORIDE [Concomitant]
     Active Substance: IRINOTECAN HYDROCHLORIDE
  18. MITOMYCIN [Concomitant]
     Active Substance: MITOMYCIN
  19. OSIMERTINIB [Concomitant]
     Active Substance: OSIMERTINIB
  20. PACLITAXEL [Concomitant]
     Active Substance: PACLITAXEL
  21. PERJETA [Concomitant]
     Active Substance: PERTUZUMAB
  22. TRASTUZUMAB DERUXTECAN [Concomitant]
     Active Substance: TRASTUZUMAB DERUXTECAN
  23. LEUCOVORIN [Concomitant]
     Active Substance: LEUCOVORIN\LEUCOVORIN CALCIUM

REACTIONS (2)
  - Off label use [Unknown]
  - Pancytopenia [Unknown]
